FAERS Safety Report 7321574-7 (Version None)
Quarter: 2011Q1

REPORT INFORMATION
  Report Type: 
  Country: None (occurrence: None)
  Receive Date: 20110228
  Receipt Date: 20100909
  Transmission Date: 20110831
  Serious: No
  Sender: FDA-Public Use
  Company Number: A0862240A

PATIENT
  Sex: Female

DRUGS (1)
  1. VALTREX [Suspect]
     Dates: start: 20100513

REACTIONS (6)
  - BACK PAIN [None]
  - DIARRHOEA [None]
  - STOMATITIS [None]
  - NAUSEA [None]
  - RASH [None]
  - PYREXIA [None]
